FAERS Safety Report 11167163 (Version 1)
Quarter: 2015Q2

REPORT INFORMATION
  Report Type: Spontaneous
  Country: US (occurrence: None)
  Receive Date: 20150604
  Receipt Date: 20150604
  Transmission Date: 20150821
  Serious: Yes (Other)
  Sender: FDA-Public Use
  Company Number: None

PATIENT
  Age: 41 Year
  Sex: Female

DRUGS (1)
  1. HUMIRA [Suspect]
     Active Substance: ADALIMUMAB
     Indication: COLITIS
     Route: 048
     Dates: start: 20150402

REACTIONS (6)
  - Nasopharyngitis [None]
  - Diarrhoea [None]
  - Cough [None]
  - Constipation [None]
  - Pulmonary congestion [None]
  - Colitis [None]

NARRATIVE: CASE EVENT DATE: 20150526
